FAERS Safety Report 11042881 (Version 1)
Quarter: 2015Q2

REPORT INFORMATION
  Report Type: Report from Study
  Country: ZA (occurrence: ZA)
  Receive Date: 20150417
  Receipt Date: 20150417
  Transmission Date: 20150821
  Serious: Yes (Hospitalization)
  Sender: FDA-Public Use
  Company Number: ZA-ROCHE-1564061

PATIENT
  Age: 53 Year
  Sex: Female

DRUGS (8)
  1. TREPILINE [Concomitant]
     Active Substance: AMITRIPTYLINE
     Dosage: 25MG AT NIGHT
     Route: 048
  2. ACTEMRA [Suspect]
     Active Substance: TOCILIZUMAB
     Indication: RHEUMATOID ARTHRITIS
     Route: 042
     Dates: start: 20110512
  3. COXFLAM [Concomitant]
     Active Substance: MELOXICAM
     Route: 048
  4. FOLIC ACID. [Concomitant]
     Active Substance: FOLIC ACID
     Route: 048
  5. DORMONOCT [Concomitant]
     Active Substance: LOPRAZOLAM
     Dosage: 2MG AT NIGHT
     Route: 048
  6. ALTOSEC [Concomitant]
     Active Substance: OMEPRAZOLE
     Route: 048
  7. INDAPAMIDE. [Concomitant]
     Active Substance: INDAPAMIDE
     Route: 048
  8. PREDNISONE. [Concomitant]
     Active Substance: PREDNISONE
     Route: 048

REACTIONS (2)
  - Meningioma [Unknown]
  - Seizure [Unknown]

NARRATIVE: CASE EVENT DATE: 20150327
